FAERS Safety Report 8381413-2 (Version None)
Quarter: 2012Q2

REPORT INFORMATION
  Report Type: 
  Country: None (occurrence: None)
  Receive Date: 20120523
  Receipt Date: 20111219
  Transmission Date: 20120825
  Serious: Yes (Other)
  Sender: FDA-Public Use
  Company Number: DE-ROCHE-794067

PATIENT
  Sex: Female

DRUGS (2)
  1. IBANDRONATE SODIUM [Suspect]
     Indication: BREAST CANCER METASTATIC
     Dosage: FREQUENCY:DAILY
     Route: 048
  2. IBANDRONATE SODIUM [Suspect]

REACTIONS (2)
  - OSTEONECROSIS OF JAW [None]
  - INFECTED NEOPLASM [None]
